FAERS Safety Report 6680028-1 (Version None)
Quarter: 2010Q2

REPORT INFORMATION
  Report Type: 
  Country: None (occurrence: None)
  Receive Date: 20100413
  Receipt Date: 20100401
  Transmission Date: 20101027
  Serious: Yes (Hospitalization)
  Sender: FDA-Public Use
  Company Number: JP-AMGEN-US402284

PATIENT
  Sex: Male

DRUGS (11)
  1. ENBREL [Suspect]
     Indication: RHEUMATOID ARTHRITIS
     Route: 058
     Dates: start: 20071011, end: 20100218
  2. PROGRAF [Suspect]
     Indication: RHEUMATOID ARTHRITIS
     Route: 048
     Dates: start: 20080228, end: 20100304
  3. NEURONTIN [Concomitant]
     Indication: PAIN IN EXTREMITY
     Route: 048
     Dates: start: 20090618
  4. TAKEPRON [Concomitant]
     Indication: REFLUX OESOPHAGITIS
     Route: 048
     Dates: start: 20090407
  5. NU-LOTAN [Concomitant]
     Dosage: NOT PROVIDED
     Route: 048
  6. CERNILTON [Concomitant]
     Dosage: NOT PROVIDED
     Route: 048
  7. DIAZEPAM [Concomitant]
     Dosage: NOT PROVIDED
     Route: 048
  8. NITRENDIPINE [Concomitant]
     Dosage: NOT PROVIDED
     Route: 048
  9. LIPITOR [Concomitant]
     Dosage: NOT PROVIDED
     Route: 048
  10. ACTONEL [Concomitant]
     Indication: OSTEOPOROSIS
     Route: 048
     Dates: start: 20061023, end: 20100304
  11. SULFAMETHOXAZOLE AND TRIMETHOPRIM [Concomitant]
     Indication: PROPHYLAXIS
     Route: 048
     Dates: start: 20090219, end: 20090521

REACTIONS (2)
  - DYSPEPSIA [None]
  - GASTRIC CANCER [None]
